FAERS Safety Report 15069446 (Version 1)
Quarter: 2018Q2

REPORT INFORMATION
  Report Type: Report from Study
  Country: US (occurrence: US)
  Receive Date: 20180626
  Receipt Date: 20180626
  Transmission Date: 20180711
  Serious: Yes (Other)
  Sender: FDA-Public Use
  Company Number: US-BAYER-2018-117559

PATIENT

DRUGS (45)
  1. MEROPENEM. [Suspect]
     Active Substance: MEROPENEM
     Indication: DEVICE RELATED INFECTION
     Dosage: UNK
     Dates: start: 201301
  2. SULFAMETHOXAZOLE/TRIMETHOPRIM [Suspect]
     Active Substance: SULFAMETHOXAZOLE\TRIMETHOPRIM
     Indication: DEVICE RELATED INFECTION
     Dosage: UNK
     Dates: start: 201205
  3. SULFAMETHOXAZOLE/TRIMETHOPRIM [Suspect]
     Active Substance: SULFAMETHOXAZOLE\TRIMETHOPRIM
     Indication: DEVICE RELATED INFECTION
     Dosage: UNK
     Dates: start: 201209
  4. SULFAMETHOXAZOLE/TRIMETHOPRIM [Suspect]
     Active Substance: SULFAMETHOXAZOLE\TRIMETHOPRIM
     Indication: DEVICE RELATED INFECTION
     Dosage: UNK
     Dates: start: 201302
  5. CEFTRIAXONE. [Suspect]
     Active Substance: CEFTRIAXONE
     Indication: DEVICE RELATED INFECTION
     Dosage: UNK
     Dates: start: 201205
  6. CEFTRIAXONE. [Suspect]
     Active Substance: CEFTRIAXONE
     Indication: DEVICE RELATED INFECTION
     Dosage: UNK
     Dates: start: 201211
  7. CEFTRIAXONE. [Suspect]
     Active Substance: CEFTRIAXONE
     Indication: DEVICE RELATED INFECTION
     Dosage: UNK
     Dates: start: 201212
  8. CEFTRIAXONE. [Suspect]
     Active Substance: CEFTRIAXONE
     Indication: DEVICE RELATED INFECTION
     Dosage: UNK
     Dates: start: 201302
  9. RIFAMPICIN [Suspect]
     Active Substance: RIFAMPIN
     Indication: DEVICE RELATED INFECTION
     Dosage: UNK
     Dates: start: 201211
  10. MEROPENEM. [Suspect]
     Active Substance: MEROPENEM
     Indication: DEVICE RELATED INFECTION
     Dosage: UNK
     Dates: start: 201302
  11. VANCOMYCIN [Suspect]
     Active Substance: VANCOMYCIN
     Indication: DEVICE RELATED INFECTION
     Dosage: UNK
     Route: 042
     Dates: start: 201203
  12. VANCOMYCIN [Suspect]
     Active Substance: VANCOMYCIN
     Indication: DEVICE RELATED INFECTION
     Dosage: UNK
     Route: 042
     Dates: start: 201206
  13. VANCOMYCIN [Suspect]
     Active Substance: VANCOMYCIN
     Indication: DEVICE RELATED INFECTION
     Dosage: UNK
     Route: 042
     Dates: start: 201301
  14. CEFTRIAXONE. [Suspect]
     Active Substance: CEFTRIAXONE
     Indication: DEVICE RELATED INFECTION
     Dosage: UNK
     Dates: start: 201203
  15. CLINDAMYCIN. [Suspect]
     Active Substance: CLINDAMYCIN
     Indication: DEVICE RELATED INFECTION
     Dosage: UNK
     Dates: start: 201209
  16. VANCOMYCIN [Suspect]
     Active Substance: VANCOMYCIN
     Indication: DEVICE RELATED INFECTION
     Dosage: UNK
     Route: 042
     Dates: start: 201205
  17. VANCOMYCIN [Suspect]
     Active Substance: VANCOMYCIN
     Indication: DEVICE RELATED INFECTION
     Dosage: UNK
     Route: 042
     Dates: start: 201211
  18. CEFTRIAXONE. [Suspect]
     Active Substance: CEFTRIAXONE
     Indication: DEVICE RELATED INFECTION
     Dosage: UNK
     Dates: start: 201204
  19. CEFTRIAXONE. [Suspect]
     Active Substance: CEFTRIAXONE
     Indication: DEVICE RELATED INFECTION
     Dosage: UNK
     Dates: start: 201206
  20. CLINDAMYCIN. [Suspect]
     Active Substance: CLINDAMYCIN
     Indication: DEVICE RELATED INFECTION
     Dosage: UNK
     Dates: start: 201302
  21. GENTAMICIN. [Suspect]
     Active Substance: GENTAMICIN
     Indication: DEVICE RELATED INFECTION
     Dosage: UNK
     Dates: start: 201212
  22. GENTAMICIN. [Suspect]
     Active Substance: GENTAMICIN
     Indication: DEVICE RELATED INFECTION
     Dosage: UNK
     Dates: start: 201302
  23. MEROPENEM. [Suspect]
     Active Substance: MEROPENEM
     Indication: DEVICE RELATED INFECTION
     Dosage: UNK
     Dates: start: 201204
  24. SULFAMETHOXAZOLE/TRIMETHOPRIM [Suspect]
     Active Substance: SULFAMETHOXAZOLE\TRIMETHOPRIM
     Indication: DEVICE RELATED INFECTION
     Dosage: UNK
     Dates: start: 201207
  25. VANCOMYCIN [Suspect]
     Active Substance: VANCOMYCIN
     Indication: DEVICE RELATED INFECTION
     Dosage: UNK
     Route: 042
     Dates: start: 201207
  26. VANCOMYCIN [Suspect]
     Active Substance: VANCOMYCIN
     Indication: DEVICE RELATED INFECTION
     Dosage: UNK
     Route: 042
     Dates: start: 201212
  27. CEFTRIAXONE. [Suspect]
     Active Substance: CEFTRIAXONE
     Indication: DEVICE RELATED INFECTION
     Dosage: UNK
     Dates: start: 201210
  28. CLINDAMYCIN. [Suspect]
     Active Substance: CLINDAMYCIN
     Indication: DEVICE RELATED INFECTION
     Dosage: UNK
     Dates: start: 201208
  29. MEROPENEM. [Suspect]
     Active Substance: MEROPENEM
     Indication: DEVICE RELATED INFECTION
     Dosage: UNK
     Dates: start: 201207
  30. CEFTRIAXONE. [Suspect]
     Active Substance: CEFTRIAXONE
     Indication: DEVICE RELATED INFECTION
     Dosage: UNK
     Dates: start: 201208
  31. CLINDAMYCIN. [Suspect]
     Active Substance: CLINDAMYCIN
     Indication: DEVICE RELATED INFECTION
     Dosage: UNK
     Dates: start: 201204
  32. CLINDAMYCIN. [Suspect]
     Active Substance: CLINDAMYCIN
     Indication: DEVICE RELATED INFECTION
     Dosage: UNK
     Dates: start: 201210
  33. CIPROFLOXACIN. [Suspect]
     Active Substance: CIPROFLOXACIN
     Indication: DEVICE RELATED INFECTION
     Dosage: UNK
     Dates: start: 201207
  34. VANCOMYCIN [Suspect]
     Active Substance: VANCOMYCIN
     Indication: DEVICE RELATED INFECTION
     Dosage: UNK
     Route: 042
     Dates: start: 201208
  35. VANCOMYCIN [Suspect]
     Active Substance: VANCOMYCIN
     Indication: DEVICE RELATED INFECTION
     Dosage: UNK
     Route: 042
     Dates: start: 201210
  36. GENTAMICIN. [Suspect]
     Active Substance: GENTAMICIN
     Indication: DEVICE RELATED INFECTION
     Dosage: UNK
     Dates: start: 201210
  37. CIPROFLOXACIN. [Suspect]
     Active Substance: CIPROFLOXACIN
     Indication: DEVICE RELATED INFECTION
     Dosage: UNK
     Dates: start: 201302
  38. METRONIDAZOLE. [Suspect]
     Active Substance: METRONIDAZOLE
     Indication: DEVICE RELATED INFECTION
     Dosage: UNK
     Dates: start: 201207
  39. VANCOMYCIN [Suspect]
     Active Substance: VANCOMYCIN
     Indication: DEVICE RELATED INFECTION
     Dosage: UNK
     Route: 042
     Dates: start: 201204
  40. VANCOMYCIN [Suspect]
     Active Substance: VANCOMYCIN
     Indication: DEVICE RELATED INFECTION
     Dosage: UNK
     Route: 042
     Dates: start: 201302
  41. METRONIDAZOLE. [Suspect]
     Active Substance: METRONIDAZOLE
     Indication: DEVICE RELATED INFECTION
     Dosage: UNK
     Dates: start: 201302
  42. CEFTRIAXONE. [Suspect]
     Active Substance: CEFTRIAXONE
     Indication: DEVICE RELATED INFECTION
     Dosage: UNK
     Dates: start: 201301
  43. GENTAMICIN. [Suspect]
     Active Substance: GENTAMICIN
     Indication: DEVICE RELATED INFECTION
     Dosage: UNK
     Dates: start: 201205
  44. GENTAMICIN. [Suspect]
     Active Substance: GENTAMICIN
     Indication: DEVICE RELATED INFECTION
     Dosage: UNK
     Dates: start: 201301
  45. RIFAMPICIN [Suspect]
     Active Substance: RIFAMPIN
     Indication: DEVICE RELATED INFECTION
     Dosage: UNK
     Dates: start: 201212

REACTIONS (4)
  - Pathogen resistance [None]
  - Dysbacteriosis [None]
  - Drug administered to patient of inappropriate age [None]
  - Off label use [None]
